FAERS Safety Report 6750407-2 (Version None)
Quarter: 2010Q2

REPORT INFORMATION
  Report Type: 
  Country: None (occurrence: None)
  Receive Date: 20100601
  Receipt Date: 20100518
  Transmission Date: 20101027
  Serious: Yes (Other)
  Sender: FDA-Public Use
  Company Number: US-ELI_LILLY_AND_COMPANY-US201005005000

PATIENT
  Age: 78 Year
  Sex: Male
  Weight: 88.435 kg

DRUGS (3)
  1. CYMBALTA [Suspect]
     Dates: start: 20090101
  2. LYRICA [Concomitant]
     Dosage: 100 MG, 3/D
  3. LYRICA [Concomitant]
     Dosage: 75 MG, 2/D

REACTIONS (3)
  - BLINDNESS UNILATERAL [None]
  - MALAISE [None]
  - OPTIC NERVE INFARCTION [None]
